FAERS Safety Report 11793051 (Version 1)
Quarter: 2015Q4

REPORT INFORMATION
  Report Type: Spontaneous
  Country: US (occurrence: None)
  Receive Date: 20151201
  Receipt Date: 20151201
  Transmission Date: 20160305
  Serious: Yes (Life-Threatening, Disabling)
  Sender: FDA-Public Use
  Company Number: None

PATIENT
  Age: 55 Year
  Sex: Female
  Weight: 102.06 kg

DRUGS (4)
  1. BYSTOLIC [Concomitant]
     Active Substance: NEBIVOLOL HYDROCHLORIDE
  2. OMEPRAZOLE. [Concomitant]
     Active Substance: OMEPRAZOLE
  3. VOLTAREN [Suspect]
     Active Substance: DICLOFENAC SODIUM
     Indication: ARTHRALGIA
     Dosage: 1 MORNING ?1 EVENING
     Route: 048
     Dates: start: 201404, end: 20151104
  4. LISINOPRIL. [Concomitant]
     Active Substance: LISINOPRIL

REACTIONS (24)
  - Nausea [None]
  - Skin exfoliation [None]
  - Visual impairment [None]
  - Sleep disorder due to general medical condition, insomnia type [None]
  - Condition aggravated [None]
  - Swelling [None]
  - Dry skin [None]
  - Pyrexia [None]
  - Pollakiuria [None]
  - Chills [None]
  - Eye pain [None]
  - Muscular weakness [None]
  - Pain in jaw [None]
  - Dizziness [None]
  - Hypoaesthesia [None]
  - Ear haemorrhage [None]
  - Asthenia [None]
  - Abdominal discomfort [None]
  - Rectal haemorrhage [None]
  - Dyspnoea [None]
  - Decreased appetite [None]
  - Oropharyngeal pain [None]
  - Headache [None]
  - Vision blurred [None]

NARRATIVE: CASE EVENT DATE: 201404
